FAERS Safety Report 4416853-7 (Version None)
Quarter: 2004Q3

REPORT INFORMATION
  Report Type: 
  Country: None (occurrence: None)
  Receive Date: 20040802
  Receipt Date: 20040720
  Transmission Date: 20050211
  Serious: Yes (Death, Other)
  Sender: FDA-Public Use
  Company Number: 163-20785-04070492

PATIENT
  Age: 56 Year
  Sex: Male
  Weight: 73.6 kg

DRUGS (9)
  1. THALOMID [Suspect]
     Indication: METASTASES TO CENTRAL NERVOUS SYSTEM
     Dosage: 400-800 MG, AT BEDTIME, ORAL
     Route: 048
     Dates: start: 20040413, end: 20040528
  2. RADIATION THERAPY [Suspect]
     Indication: METASTASES TO CENTRAL NERVOUS SYSTEM
     Dosage: 2.5 GY DAILY ON DAYS 1-5 FOR 3 WEEKS
     Dates: start: 20040413, end: 20040503
  3. ANTICOAGULANT THERAPY [Suspect]
  4. COUMADIN [Suspect]
     Indication: DEEP VEIN THROMBOSIS
     Dosage: LOW DOSE
     Dates: start: 20040528, end: 20040611
  5. TAXOTERE [Concomitant]
  6. CISPLATIN [Concomitant]
  7. DILANTIN [Concomitant]
  8. QUINAPRIL HCL (QUINAPRIL HYDROCHLORIDE) [Concomitant]
  9. DECADRON [Concomitant]

REACTIONS (11)
  - BLOOD SODIUM DECREASED [None]
  - DEEP VEIN THROMBOSIS [None]
  - DIZZINESS [None]
  - DYSPNOEA EXERTIONAL [None]
  - INTERNATIONAL NORMALISED RATIO INCREASED [None]
  - LOSS OF CONSCIOUSNESS [None]
  - NEUROPATHY PERIPHERAL [None]
  - PROTHROMBIN TIME PROLONGED [None]
  - RADIATION SKIN INJURY [None]
  - SEDATION [None]
  - SYNCOPE [None]
